FAERS Safety Report 7278000-6 (Version None)
Quarter: 2011Q1

REPORT INFORMATION
  Report Type: 
  Country: None (occurrence: None)
  Receive Date: 20110207
  Receipt Date: 20100708
  Transmission Date: 20110831
  Serious: Yes (Hospitalization, Other)
  Sender: FDA-Public Use
  Company Number: GXBR2010US01277

PATIENT
  Sex: Male
  Weight: 86.168 kg

DRUGS (4)
  1. LITHIUM [Concomitant]
     Indication: CLUSTER HEADACHE
  2. ERGOTAMINE TARTRATE/CAFFEINE TABLETS USP [Suspect]
     Indication: CLUSTER HEADACHE
     Dosage: UNK MG, PRN
     Route: 048
  3. ERGOTAMINE [Suspect]
     Indication: CLUSTER HEADACHE
     Route: 042
  4. PREDNISONE [Concomitant]
     Indication: CLUSTER HEADACHE

REACTIONS (9)
  - HYPOAESTHESIA [None]
  - PERIPHERAL COLDNESS [None]
  - SKIN DISCOLOURATION [None]
  - FATIGUE [None]
  - AORTIC ANEURYSM [None]
  - AORTIC ANEURYSM REPAIR [None]
  - ARTERIAL STENT INSERTION [None]
  - ARTERIAL OCCLUSIVE DISEASE [None]
  - INTERMITTENT CLAUDICATION [None]
